FAERS Safety Report 19036634 (Version 33)
Quarter: 2022Q4

REPORT INFORMATION
  Report Type: Spontaneous
  Country: CA (occurrence: CA)
  Receive Date: 20210322
  Receipt Date: 20221206
  Transmission Date: 20230112
  Serious: Yes (Hospitalization, Other)
  Sender: FDA-Public Use
  Company Number: CA-CELLTRION INC.-2021CA003651

PATIENT

DRUGS (33)
  1. INFLECTRA [Suspect]
     Active Substance: INFLIXIMAB-DYYB
     Indication: Crohn^s disease
     Dosage: 1400 MG 0, 2, 6 THEN EVERY 8 WEEKS
     Route: 042
     Dates: start: 2021, end: 2021
  2. INFLECTRA [Suspect]
     Active Substance: INFLIXIMAB-DYYB
     Dosage: 1400 MG 0, 2, 6 THEN EVERY 8 WEEKS
     Route: 042
     Dates: start: 20210316, end: 20210622
  3. INFLECTRA [Suspect]
     Active Substance: INFLIXIMAB-DYYB
     Dosage: 1400 MG 0, 2, 6 THEN EVERY 8 WEEKS
     Route: 042
     Dates: start: 20210427
  4. INFLECTRA [Suspect]
     Active Substance: INFLIXIMAB-DYYB
     Dosage: 1400 MG 0, 2, 6 THEN EVERY 8 WEEKS
     Route: 042
     Dates: start: 20210622
  5. INFLECTRA [Suspect]
     Active Substance: INFLIXIMAB-DYYB
     Dosage: 1500 MG, EVERY 6 WEEKS
     Route: 042
     Dates: start: 20210810, end: 20220127
  6. INFLECTRA [Suspect]
     Active Substance: INFLIXIMAB-DYYB
     Dosage: 1500 MG, EVERY 6 WEEKS
     Route: 042
     Dates: start: 20210810, end: 20211216
  7. INFLECTRA [Suspect]
     Active Substance: INFLIXIMAB-DYYB
     Dosage: 1500 MG, EVERY 6 WEEKS
     Route: 042
     Dates: start: 2021
  8. INFLECTRA [Suspect]
     Active Substance: INFLIXIMAB-DYYB
     Dosage: 1500 MG, EVERY 6 WEEKS
     Route: 042
     Dates: start: 20211216
  9. INFLECTRA [Suspect]
     Active Substance: INFLIXIMAB-DYYB
     Dosage: 1600 MG, EVERY 4 WEEKS
     Route: 042
     Dates: start: 20220127
  10. INFLECTRA [Suspect]
     Active Substance: INFLIXIMAB-DYYB
     Dosage: 1600 MG, EVERY 4 WEEKS
     Route: 042
     Dates: start: 20220228
  11. INFLECTRA [Suspect]
     Active Substance: INFLIXIMAB-DYYB
     Dosage: 1600 MG, EVERY 4 WEEKS
     Route: 042
     Dates: start: 20220228
  12. INFLECTRA [Suspect]
     Active Substance: INFLIXIMAB-DYYB
     Dosage: 1600 MG, EVERY 4 WEEKS
     Route: 042
     Dates: start: 20220228, end: 20220330
  13. INFLECTRA [Suspect]
     Active Substance: INFLIXIMAB-DYYB
     Dosage: 1600 MG, EVERY 4 WEEKS
     Route: 042
     Dates: start: 20220330
  14. INFLECTRA [Suspect]
     Active Substance: INFLIXIMAB-DYYB
     Dosage: 1600 MG, EVERY 4 WEEKS
     Route: 042
     Dates: start: 20220510, end: 20220711
  15. INFLECTRA [Suspect]
     Active Substance: INFLIXIMAB-DYYB
     Dosage: 1600 MG, EVERY 4 WEEKS
     Route: 042
     Dates: start: 20220613
  16. INFLECTRA [Suspect]
     Active Substance: INFLIXIMAB-DYYB
     Dosage: 10 MG/KG , EVERY 8 WEEKS , NOT YET STARTED
     Route: 042
  17. INFLECTRA [Suspect]
     Active Substance: INFLIXIMAB-DYYB
     Dosage: 10 MG/KG , RESCUE DOSE, NOT GIVEN YET
     Route: 042
  18. INFLECTRA [Suspect]
     Active Substance: INFLIXIMAB-DYYB
     Dosage: 1600 MG, RESCUE DOSE , THEN Q 4 WEEKS-NOT GIVEN YET
     Route: 042
  19. INFLECTRA [Suspect]
     Active Substance: INFLIXIMAB-DYYB
     Dosage: 1600 MG, EVERY 4 WEEKS
     Route: 042
     Dates: start: 20220711
  20. INFLECTRA [Suspect]
     Active Substance: INFLIXIMAB-DYYB
     Dosage: 1600 MG, EVERY 4 WEEKS (RESCUE DOSE, THEN Q 4 WEEKS)
     Route: 042
     Dates: start: 20220810
  21. INFLECTRA [Suspect]
     Active Substance: INFLIXIMAB-DYYB
     Dosage: 1600 MG, EVERY 4 WEEKS
     Route: 042
     Dates: start: 20220817
  22. INFLECTRA [Suspect]
     Active Substance: INFLIXIMAB-DYYB
     Dosage: 1600 MG, EVERY 4 WEEKS
     Route: 042
     Dates: start: 20220822
  23. INFLECTRA [Suspect]
     Active Substance: INFLIXIMAB-DYYB
     Dosage: UNK
     Route: 042
  24. INFLECTRA [Suspect]
     Active Substance: INFLIXIMAB-DYYB
     Dosage: 1600MG, RESCUE DOSE, THEN Q 4 WEEKS
     Dates: start: 20220810
  25. INFLECTRA [Suspect]
     Active Substance: INFLIXIMAB-DYYB
     Dosage: 1600 MG, EVERY 4 WEEKS
     Route: 042
     Dates: start: 20220920
  26. INFLECTRA [Suspect]
     Active Substance: INFLIXIMAB-DYYB
     Dosage: UNK
     Route: 042
  27. INFLECTRA [Suspect]
     Active Substance: INFLIXIMAB-DYYB
     Dosage: 10 MG/KG, Q 0, 2, 6, THEN EVERY 4 WEEKS
     Dates: start: 20221123
  28. FOLIC ACID [Concomitant]
     Active Substance: FOLIC ACID
     Dosage: 5 MG, DAILY
  29. LEUPROLIDE ACETATE [Concomitant]
     Active Substance: LEUPROLIDE ACETATE
     Dosage: UNK
     Dates: start: 20211103
  30. METHOTREXATE [Concomitant]
     Active Substance: METHOTREXATE
     Dosage: 1 DF, WEEKLY
  31. METHOTREXATE [Concomitant]
     Active Substance: METHOTREXATE
     Dosage: 25 MG WEEKLY
  32. METHOTREXATE [Concomitant]
     Active Substance: METHOTREXATE
     Dosage: 1 DF, WEEKLY
  33. PANTOPRAZOLE SODIUM [Concomitant]
     Active Substance: PANTOPRAZOLE SODIUM
     Dosage: 1 DF DOSAGE INFO NOT AVAILABLE
     Route: 065

REACTIONS (37)
  - Seizure [Unknown]
  - Condition aggravated [Unknown]
  - Heart rate increased [Unknown]
  - Respiratory disorder [Unknown]
  - Joint swelling [Not Recovered/Not Resolved]
  - Arthralgia [Not Recovered/Not Resolved]
  - Oesophageal disorder [Unknown]
  - Post procedural haemorrhage [Not Recovered/Not Resolved]
  - Prostate cancer [Not Recovered/Not Resolved]
  - Dental discomfort [Unknown]
  - Drug level decreased [Unknown]
  - Drug level abnormal [Unknown]
  - Off label use [Unknown]
  - Off label use [Unknown]
  - Off label use [Unknown]
  - Intentional product use issue [Unknown]
  - Inappropriate schedule of product administration [Unknown]
  - Tooth infection [Unknown]
  - Weight increased [Not Recovered/Not Resolved]
  - Oxygen saturation decreased [Unknown]
  - Tracheal disorder [Unknown]
  - Feeling abnormal [Unknown]
  - Psoriasis [Unknown]
  - Joint stiffness [Unknown]
  - Condition aggravated [Unknown]
  - Headache [Unknown]
  - Epistaxis [Unknown]
  - Arthralgia [Unknown]
  - Joint swelling [Unknown]
  - Skin lesion [Not Recovered/Not Resolved]
  - Scab [Unknown]
  - Pyrexia [Not Recovered/Not Resolved]
  - Asthenia [Unknown]
  - Gastroenteritis viral [Recovered/Resolved]
  - Chills [Unknown]
  - Weight decreased [Unknown]
  - Off label use [Unknown]

NARRATIVE: CASE EVENT DATE: 20210101
